FAERS Safety Report 11568970 (Version 3)
Quarter: 2015Q4

REPORT INFORMATION
  Report Type: Spontaneous
  Country: US (occurrence: US)
  Receive Date: 20150929
  Receipt Date: 20151120
  Transmission Date: 20160304
  Serious: Yes (Other)
  Sender: FDA-Public Use
  Company Number: US-GLAXOSMITHKLINE-US2015GSK110317

PATIENT
  Sex: Female

DRUGS (1)
  1. TANZEUM [Suspect]
     Active Substance: ALBIGLUTIDE
     Indication: TYPE 2 DIABETES MELLITUS
     Dosage: 30 MG, WE
     Route: 042
     Dates: start: 201506

REACTIONS (7)
  - Tremor [Unknown]
  - Underdose [Unknown]
  - Product preparation error [Unknown]
  - Device use error [Unknown]
  - Dry mouth [Unknown]
  - Mood altered [Unknown]
  - Diabetes mellitus inadequate control [Unknown]
